FAERS Safety Report 12893844 (Version 1)
Quarter: 2016Q4

REPORT INFORMATION
  Report Type: Spontaneous
  Country: US (occurrence: US)
  Receive Date: 20161028
  Receipt Date: 20161028
  Transmission Date: 20170207
  Serious: Yes (Death, Other)
  Sender: FDA-Public Use
  Company Number: US-BAYER-2016-202430

PATIENT
  Age: 87 Year
  Sex: Male

DRUGS (2)
  1. CIPROFLOXACIN. [Suspect]
     Active Substance: CIPROFLOXACIN
     Indication: PNEUMONIA
     Dosage: UNK
  2. CIPROFLOXACIN. [Suspect]
     Active Substance: CIPROFLOXACIN
     Indication: BURKHOLDERIA CEPACIA COMPLEX INFECTION

REACTIONS (4)
  - Multiple organ dysfunction syndrome [Fatal]
  - Renal failure [None]
  - Hypoxia [None]
  - Respiratory disorder [Fatal]
